FAERS Safety Report 22361967 (Version 2)
Quarter: 2023Q2

REPORT INFORMATION
  Report Type: Report from Study
  Country: EG (occurrence: EG)
  Receive Date: 20230524
  Receipt Date: 20230531
  Transmission Date: 20230721
  Serious: Yes (Death, Hospitalization, Other)
  Sender: FDA-Public Use
  Company Number: EG-002147023-NVSC2023EG116951

PATIENT
  Age: 54 Year
  Sex: Male

DRUGS (2)
  1. HYRIMOZ [Suspect]
     Active Substance: ADALIMUMAB-ADAZ
     Indication: Ankylosing spondylitis
     Dosage: UNK
     Route: 065
     Dates: end: 202301
  2. PANADOL [Concomitant]
     Active Substance: ACETAMINOPHEN
     Indication: Pain
     Dosage: UNK
     Route: 065

REACTIONS (8)
  - Hepatic failure [Fatal]
  - Pulmonary thrombosis [Fatal]
  - Respiratory failure [Fatal]
  - Coagulopathy [Fatal]
  - Diabetes mellitus [Fatal]
  - Hypertension [Fatal]
  - Lethargy [Recovering/Resolving]
  - Depression [Recovering/Resolving]

NARRATIVE: CASE EVENT DATE: 20230101
